FAERS Safety Report 20150276 (Version 11)
Quarter: 2022Q4

REPORT INFORMATION
  Report Type: Spontaneous
  Country: CA (occurrence: CA)
  Receive Date: 20211206
  Receipt Date: 20221026
  Transmission Date: 20230113
  Serious: Yes (Other)
  Sender: FDA-Public Use
  Company Number: CA-CELLTRION INC.-2020CA034759

PATIENT

DRUGS (18)
  1. INFLECTRA [Suspect]
     Active Substance: INFLIXIMAB-DYYB
     Indication: Crohn^s disease
     Dosage: 600 MG AT 0,2,6,WEEKS THEN EVERY 8 WEEKS
     Route: 042
     Dates: start: 20201215, end: 20210127
  2. INFLECTRA [Suspect]
     Active Substance: INFLIXIMAB-DYYB
     Dosage: 600 MG AT 0,2,6,WEEKS THEN EVERY 8 WEEKS
     Route: 042
     Dates: start: 20201215
  3. INFLECTRA [Suspect]
     Active Substance: INFLIXIMAB-DYYB
     Dosage: 600 MG AT 0,2,6,WEEKS THEN EVERY 8 WEEKS
     Route: 042
     Dates: start: 20201228
  4. INFLECTRA [Suspect]
     Active Substance: INFLIXIMAB-DYYB
     Dosage: 600 MG AT 0,2,6,WEEKS THEN EVERY 8 WEEKS
     Route: 042
     Dates: start: 20210127
  5. INFLECTRA [Suspect]
     Active Substance: INFLIXIMAB-DYYB
     Dosage: 600 MG AT 0,2,6,WEEKS THEN EVERY 8 WEEKS
     Route: 042
     Dates: start: 20210324
  6. INFLECTRA [Suspect]
     Active Substance: INFLIXIMAB-DYYB
     Dosage: 700 MG, EVERY 8 WEEKS
     Route: 042
     Dates: start: 20210324, end: 20210520
  7. INFLECTRA [Suspect]
     Active Substance: INFLIXIMAB-DYYB
     Dosage: 600 MG AT 0,2,6,WEEKS THEN EVERY 8 WEEKS
     Route: 042
     Dates: start: 20210520
  8. INFLECTRA [Suspect]
     Active Substance: INFLIXIMAB-DYYB
     Dosage: 900 MG AT 0,2,6,WEEKS THEN EVERY 8 WEEKS
     Route: 042
     Dates: start: 20210805
  9. INFLECTRA [Suspect]
     Active Substance: INFLIXIMAB-DYYB
     Dosage: 900 MG EVERY 8 WEEKS
     Route: 042
     Dates: start: 20210805, end: 20220401
  10. INFLECTRA [Suspect]
     Active Substance: INFLIXIMAB-DYYB
     Dosage: 900 MG AT 0,2,6,WEEKS THEN EVERY 8 WEEKS
     Route: 042
     Dates: start: 20210930
  11. INFLECTRA [Suspect]
     Active Substance: INFLIXIMAB-DYYB
     Dosage: 900 MG AT 0,2,6,WEEKS THEN EVERY 8 WEEKS
     Route: 042
     Dates: start: 20211125
  12. INFLECTRA [Suspect]
     Active Substance: INFLIXIMAB-DYYB
     Dosage: 900 MG AT 0,2,6,WEEKS THEN EVERY 8 WEEKS
     Route: 042
     Dates: start: 20211125
  13. INFLECTRA [Suspect]
     Active Substance: INFLIXIMAB-DYYB
     Dosage: 900 MG AT 0,2,6,WEEKS THEN EVERY 8 WEEKS
     Route: 042
     Dates: start: 20220121
  14. INFLECTRA [Suspect]
     Active Substance: INFLIXIMAB-DYYB
     Dosage: 900 MG EVERY 8 WEEKS
     Route: 042
     Dates: start: 20220401
  15. CIPROFLOXACIN [Concomitant]
     Active Substance: CIPROFLOXACIN
     Dosage: UNK (FOR ONE MONTH)
     Route: 065
     Dates: start: 20201127
  16. CIPROFLOXACIN [Concomitant]
     Active Substance: CIPROFLOXACIN
     Dosage: 1 DF, DOSAGE INFORMATION NOT AVAILABLE
     Route: 065
     Dates: start: 20201127
  17. METRONIDAZOLE [Concomitant]
     Active Substance: METRONIDAZOLE
     Dosage: UNK, FOR ONE MONTH
     Route: 065
     Dates: start: 20201127
  18. METRONIDAZOLE [Concomitant]
     Active Substance: METRONIDAZOLE
     Dosage: 1 DF, DOSAGE INFORMATION NOT AVAILABLE
     Route: 065
     Dates: start: 20201127

REACTIONS (12)
  - Weight increased [Unknown]
  - Intestinal resection [Unknown]
  - Fistula repair [Unknown]
  - Therapeutic response shortened [Unknown]
  - Off label use [Unknown]
  - Intentional product use issue [Unknown]
  - Inappropriate schedule of product administration [Unknown]
  - Incorrect dose administered [Unknown]
  - Blood pressure increased [Unknown]
  - Fistula [Unknown]
  - Fistula discharge [Unknown]
  - Weight increased [Unknown]

NARRATIVE: CASE EVENT DATE: 20210127
